FAERS Safety Report 4490483-3 (Version None)
Quarter: 2004Q4

REPORT INFORMATION
  Report Type: 
  Country: None (occurrence: None)
  Receive Date: 20041028
  Receipt Date: 20041018
  Transmission Date: 20050328
  Serious: Yes (Other)
  Sender: FDA-Public Use
  Company Number: 2004231116JP

PATIENT
  Age: 52 Year
  Sex: Female
  Weight: 50 kg

DRUGS (6)
  1. AZULFIDINE [Suspect]
     Dosage: SEE IMAGE
     Route: 048
     Dates: start: 20040525, end: 20040712
  2. AZULFIDINE [Suspect]
     Dosage: SEE IMAGE
     Route: 048
     Dates: start: 20040213
  3. AZULFIDINE [Suspect]
     Dosage: SEE IMAGE
     Route: 048
     Dates: start: 20040412
  4. HYPEN (ETODOLAC) [Concomitant]
  5. MUCOSTA (REBAMIPIDE) [Concomitant]
  6. RABEPRAZOLE SODIUM [Concomitant]

REACTIONS (5)
  - CARDIAC DISCOMFORT [None]
  - EOSINOPHILIC PNEUMONIA [None]
  - FEELING ABNORMAL [None]
  - HAEMORRHAGE SUBCUTANEOUS [None]
  - MALAISE [None]
